FAERS Safety Report 12568955 (Version 2)
Quarter: 2016Q3

REPORT INFORMATION
  Report Type: Report from Study
  Country: US (occurrence: US)
  Receive Date: 20160719
  Receipt Date: 20160727
  Transmission Date: 20161109
  Serious: No
  Sender: FDA-Public Use
  Company Number: US-ASTRAZENECA-2016SE17619

PATIENT
  Age: 75 Year
  Sex: Male

DRUGS (19)
  1. LISINOPRIL. [Suspect]
     Active Substance: LISINOPRIL
     Route: 048
  2. FIBER TABS [Concomitant]
     Active Substance: CALCIUM POLYCARBOPHIL
  3. TAGRISSO [Suspect]
     Active Substance: OSIMERTINIB
     Indication: LUNG NEOPLASM MALIGNANT
     Route: 048
     Dates: start: 20160216
  4. FINESTERIDE [Concomitant]
     Active Substance: FINASTERIDE
  5. ALLOPURINOL. [Concomitant]
     Active Substance: ALLOPURINOL
  6. ALPHAGAN P [Concomitant]
     Active Substance: BRIMONIDINE TARTRATE
  7. DYAZIDE [Concomitant]
     Active Substance: HYDROCHLOROTHIAZIDE\TRIAMTERENE
  8. LUMIGAN [Concomitant]
     Active Substance: BIMATOPROST
  9. PRILOSEC [Suspect]
     Active Substance: OMEPRAZOLE MAGNESIUM
     Route: 048
  10. CENTRUM [Concomitant]
     Active Substance: VITAMINS
  11. IBUPROFEN. [Concomitant]
     Active Substance: IBUPROFEN
  12. TRAMADOL. [Concomitant]
     Active Substance: TRAMADOL
  13. SYNTHROID [Concomitant]
     Active Substance: LEVOTHYROXINE SODIUM
  14. TAMSULOSIN [Concomitant]
     Active Substance: TAMSULOSIN
  15. AMOXICILLIN. [Concomitant]
     Active Substance: AMOXICILLIN
  16. K-DUR [Concomitant]
     Active Substance: POTASSIUM CHLORIDE
  17. ASPIRIN. [Concomitant]
     Active Substance: ASPIRIN
  18. ZOCOR [Concomitant]
     Active Substance: SIMVASTATIN
  19. ZOCOR [Concomitant]
     Active Substance: SIMVASTATIN
     Dosage: SIMVASTATIN

REACTIONS (3)
  - Nasopharyngitis [Unknown]
  - Dry skin [Unknown]
  - Dizziness [Unknown]
